FAERS Safety Report 8905672 (Version 1)
Quarter: 2012Q4

REPORT INFORMATION
  Report Type: 
  Country: US (occurrence: US)
  Receive Date: 20121113
  Receipt Date: 20121113
  Transmission Date: 20130627
  Serious: Yes (Hospitalization, Other)
  Sender: FDA-Public Use
  Company Number: US-MUTUAL PHARMACEUTICAL COMPANY, INC.-SFTM20120024

PATIENT
  Age: 51 Year
  Sex: Female

DRUGS (1)
  1. TRIMETHOPRIM/SULFAMETHOXAZOLE [Suspect]
     Indication: INFECTED SKIN ULCER
     Route: 065

REACTIONS (11)
  - Antiphospholipid syndrome [Recovered/Resolved]
  - Coagulopathy [Recovered/Resolved]
  - Malaise [Recovered/Resolved]
  - Blood lactate dehydrogenase increased [Unknown]
  - Red blood cell sedimentation rate increased [Unknown]
  - C-reactive protein increased [Unknown]
  - Immunoglobulins increased [Unknown]
  - Liver function test abnormal [Unknown]
  - Haemolytic anaemia [Recovered/Resolved]
  - Thrombocytopenia [Recovered/Resolved]
  - Pyrexia [Recovered/Resolved]
